FAERS Safety Report 5913316-4 (Version None)
Quarter: 2008Q4

REPORT INFORMATION
  Report Type: 
  Country: None (occurrence: None)
  Receive Date: 20081008
  Receipt Date: 20081008
  Transmission Date: 20090506
  Serious: Yes (Other)
  Sender: FDA-Public Use
  Company Number: None

PATIENT
  Age: 38 Year
  Sex: Female
  Weight: 62.5964 kg

DRUGS (1)
  1. ZYRTEC [Suspect]
     Indication: HYPERSENSITIVITY
     Dosage: 10 MG PER DAY PO
     Route: 048
     Dates: start: 20080921, end: 20081006

REACTIONS (4)
  - CRYING [None]
  - FEELING ABNORMAL [None]
  - HYPERSOMNIA [None]
  - MENORRHAGIA [None]
